FAERS Safety Report 9169055 (Version 6)
Quarter: 2014Q3

REPORT INFORMATION
  Report Type: Spontaneous
  Country: US (occurrence: US)
  Receive Date: 20130318
  Receipt Date: 20140828
  Transmission Date: 20150326
  Serious: Yes (Hospitalization, Other)
  Sender: FDA-Public Use
  Company Number: US-009507513-1303USA007487

PATIENT
  Sex: Female

DRUGS (5)
  1. BONIVA [Concomitant]
     Active Substance: IBANDRONATE SODIUM
     Indication: OSTEOPOROSIS
     Dosage: UNK
     Dates: start: 2008
  2. ASPIRIN. [Concomitant]
     Active Substance: ASPIRIN
     Indication: SICK SINUS SYNDROME
     Dosage: 81 MG, QD
  3. FOSAMAX [Suspect]
     Active Substance: ALENDRONATE SODIUM
     Indication: OSTEOPOROSIS
     Dosage: 70 MG, QW
     Route: 048
     Dates: start: 200607, end: 20100503
  4. ALENDRONATE SODIUM. [Suspect]
     Active Substance: ALENDRONATE SODIUM
     Dosage: 70 MG, UNK
     Route: 048
  5. CENTRUM SILVER [Concomitant]
     Active Substance: VITAMINS
     Dosage: 1 DF, QD
     Dates: start: 1973

REACTIONS (26)
  - Hypoacusis [Unknown]
  - Decubitus ulcer [Unknown]
  - Femur fracture [Unknown]
  - Loss of consciousness [Unknown]
  - Malnutrition [Unknown]
  - Dementia [Unknown]
  - Leukocytosis [Unknown]
  - Atrial fibrillation [Unknown]
  - Knee arthroplasty [Unknown]
  - Electrocardiogram T wave inversion [Unknown]
  - Dehydration [Unknown]
  - Low turnover osteopathy [Unknown]
  - Hypernatraemia [Unknown]
  - Renal failure acute [Unknown]
  - Vena cava filter insertion [Unknown]
  - Foot operation [Unknown]
  - Arthralgia [Unknown]
  - Cardiac pacemaker insertion [Unknown]
  - Decreased appetite [Unknown]
  - Anaemia [Unknown]
  - Speech disorder [Unknown]
  - Device end of service [Unknown]
  - Deep vein thrombosis [Unknown]
  - Lead dislodgement [Unknown]
  - Bacterial test positive [Unknown]
  - Knee operation [Unknown]

NARRATIVE: CASE EVENT DATE: 20120727
